FAERS Safety Report 9885812 (Version 2)
Quarter: 2014Q2

REPORT INFORMATION
  Report Type: Report from Study
  Country: AR (occurrence: AR)
  Receive Date: 20140210
  Receipt Date: 20140423
  Transmission Date: 20141212
  Serious: Yes (Death)
  Sender: FDA-Public Use
  Company Number: AR-BRISTOL-MYERS SQUIBB COMPANY-20146577

PATIENT
  Age: 62 Year
  Sex: Male

DRUGS (4)
  1. YERVOY [Suspect]
     Indication: MALIGNANT MELANOMA
     Dosage: 4 UNITS OF 50MG.
     Dates: start: 20130909, end: 20131120
  2. FENTANYL [Concomitant]
  3. DICLOFENAC [Concomitant]
  4. MEPREDNISONE [Concomitant]

REACTIONS (1)
  - Malignant neoplasm progression [Fatal]
